FAERS Safety Report 25018236 (Version 1)
Quarter: 2025Q1

REPORT INFORMATION
  Report Type: Other
  Country: ES (occurrence: ES)
  Receive Date: 20250227
  Receipt Date: 20250227
  Transmission Date: 20250408
  Serious: Yes (Life-Threatening, Hospitalization, Other)
  Sender: Atnahs Healthcare
  Company Number: ES-AEMPS-1156274

PATIENT
  Age: 21 Year
  Sex: Male
  Weight: 63 kg

DRUGS (7)
  1. DIAZEPAM [Suspect]
     Active Substance: DIAZEPAM
     Indication: Suicide attempt
     Dates: start: 20220325, end: 20220325
  2. ACETAMINOPHEN [Suspect]
     Active Substance: ACETAMINOPHEN
     Indication: Overdose
     Dates: start: 20220325, end: 20220325
  3. PREDNISONE [Suspect]
     Active Substance: PREDNISONE
     Indication: Suicide attempt
     Dates: start: 20220325, end: 20220325
  4. DESLORATADINE [Suspect]
     Active Substance: DESLORATADINE
     Indication: Suicide attempt
     Dates: start: 20220325, end: 20220325
  5. IBUPROFEN [Suspect]
     Active Substance: IBUPROFEN
     Indication: Accidental overdose
     Dates: start: 20220325, end: 20220325
  6. OMEPRAZOLE [Suspect]
     Active Substance: OMEPRAZOLE
     Indication: Suicide attempt
     Dates: start: 20220325, end: 20220325
  7. DOXYLAMINE [Suspect]
     Active Substance: DOXYLAMINE
     Indication: Suicide attempt
     Dates: start: 20220325, end: 20220325

REACTIONS (2)
  - Depressed level of consciousness [Recovered/Resolved]
  - Suicide attempt [Recovering/Resolving]

NARRATIVE: CASE EVENT DATE: 20220325
